FAERS Safety Report 6734728-5 (Version None)
Quarter: 2010Q2

REPORT INFORMATION
  Report Type: 
  Country: None (occurrence: None)
  Receive Date: 20100519
  Receipt Date: 20100519
  Transmission Date: 20101027
  Serious: Yes (Death)
  Sender: FDA-Public Use
  Company Number: None

PATIENT
  Age: 32 Year
  Sex: Male
  Weight: 76 kg

DRUGS (4)
  1. SORAFENIB, 400 MG BID, BAYER [Suspect]
     Indication: HEPATIC NEOPLASM MALIGNANT
     Dosage: 400 MG BID, ORAL
     Route: 048
     Dates: start: 20100210, end: 20100217
  2. DOXORUBICIN ELUTING BEADS, 100MG, BIOCOMPATIBLES [Suspect]
     Dosage: 100 MG INTRA-ARTERIAL
     Route: 013
     Dates: start: 20100217
  3. PANTOPRAZOLE [Concomitant]
  4. SUCRALFATE [Concomitant]

REACTIONS (12)
  - ABDOMINAL COMPARTMENT SYNDROME [None]
  - ASCITES [None]
  - BLOOD BILIRUBIN INCREASED [None]
  - ENCEPHALOPATHY [None]
  - HAEMORRHAGE [None]
  - HAEMORRHAGIC ASCITES [None]
  - HEPATIC HYDROTHORAX [None]
  - HYPOXIA [None]
  - MALIGNANT NEOPLASM PROGRESSION [None]
  - PULMONARY EMBOLISM [None]
  - PULMONARY THROMBOSIS [None]
  - VENA CAVA THROMBOSIS [None]
